FAERS Safety Report 17168994 (Version 1)
Quarter: 2019Q4

REPORT INFORMATION
  Report Type: Spontaneous
  Country: US (occurrence: US)
  Receive Date: 20191217
  Receipt Date: 20191217
  Transmission Date: 20200122
  Serious: Yes (Death)
  Sender: FDA-Public Use
  Company Number: None

PATIENT
  Age: 80 Year
  Sex: Male
  Weight: 75.3 kg

DRUGS (15)
  1. TAMSULOSIN 0.4MG [Concomitant]
     Active Substance: TAMSULOSIN
  2. FUROSEMIDE 80MG [Concomitant]
  3. MAGNESIUM 400MG [Concomitant]
     Active Substance: MAGNESIUM
  4. CALCIUM 500 + VITAMIN D3 [Concomitant]
  5. ZYTIGA [Concomitant]
     Active Substance: ABIRATERONE ACETATE
  6. OXYBUTYNIN 5MG [Concomitant]
     Active Substance: OXYBUTYNIN
  7. ASPIRIN 81MG [Concomitant]
     Active Substance: ASPIRIN
  8. ELIQUIS [Concomitant]
     Active Substance: APIXABAN
  9. ABIRATERONE ACETATE. [Suspect]
     Active Substance: ABIRATERONE ACETATE
     Route: 048
  10. BICALUTAMIDE 50MG [Concomitant]
     Active Substance: BICALUTAMIDE
  11. POTASSIUM 8 MEQ [Concomitant]
  12. SOTALOL 80MG [Concomitant]
     Active Substance: SOTALOL
  13. METOPROLOL TARTRATE 50MG [Concomitant]
     Active Substance: METOPROLOL TARTRATE
  14. PREDNISONE 5MG [Concomitant]
     Active Substance: PREDNISONE
  15. ATORVASTATIN 40MG [Concomitant]
     Active Substance: ATORVASTATIN

REACTIONS (1)
  - Death [None]
